FAERS Safety Report 4851428-7 (Version None)
Quarter: 2005Q4

REPORT INFORMATION
  Report Type: 
  Country: None (occurrence: None)
  Receive Date: 20051208
  Receipt Date: 20051129
  Transmission Date: 20060501
  Serious: Yes (Death)
  Sender: FDA-Public Use
  Company Number: WAES 0511DEU00195

PATIENT
  Age: 67 Year
  Sex: Female

DRUGS (1)
  1. HYZAAR [Suspect]
     Indication: ESSENTIAL HYPERTENSION
     Dosage: 50-12.5 MG/DAILY, PO
     Route: 048
     Dates: start: 20040422, end: 20050313

REACTIONS (2)
  - ACUTE MYOCARDIAL INFARCTION [None]
  - SUDDEN CARDIAC DEATH [None]
